FAERS Safety Report 20680782 (Version 1)
Quarter: 2022Q2

REPORT INFORMATION
  Report Type: Spontaneous
  Country: US (occurrence: US)
  Receive Date: 20220406
  Receipt Date: 20220406
  Transmission Date: 20220721
  Serious: No
  Sender: FDA-Public Use
  Company Number: US-PFIZER INC-2021784766

PATIENT
  Age: 70 Year
  Sex: Male
  Weight: 79.38 kg

DRUGS (1)
  1. SUTENT [Suspect]
     Active Substance: SUNITINIB MALATE
     Dosage: 50 MG, DAILY
     Route: 048

REACTIONS (13)
  - Pyrexia [Recovering/Resolving]
  - Pain in extremity [Not Recovered/Not Resolved]
  - Nasal dryness [Not Recovered/Not Resolved]
  - Epistaxis [Not Recovered/Not Resolved]
  - Nasal ulcer [Recovering/Resolving]
  - Pain in jaw [Recovering/Resolving]
  - Headache [Recovering/Resolving]
  - Pruritus [Recovering/Resolving]
  - Arthralgia [Not Recovered/Not Resolved]
  - Ageusia [Not Recovered/Not Resolved]
  - Glossitis [Not Recovered/Not Resolved]
  - Yellow skin [Not Recovered/Not Resolved]
  - Diarrhoea [Recovered/Resolved]

NARRATIVE: CASE EVENT DATE: 20210616
